FAERS Safety Report 25936591 (Version 3)
Quarter: 2025Q4

REPORT INFORMATION
  Report Type: Report from Study
  Country: US (occurrence: US)
  Receive Date: 20251017
  Receipt Date: 20251118
  Transmission Date: 20260118
  Serious: Yes (Other)
  Sender: DR REDDYS
  Company Number: US-DRL-USA-USA/2025/10/015711

PATIENT
  Age: 20 Year
  Sex: Female
  Weight: 62.1 kg

DRUGS (4)
  1. ZENATANE [Suspect]
     Active Substance: ISOTRETINOIN
     Indication: Acne
     Dosage: NDC NUMBER 55111-0113-81
     Route: 048
     Dates: start: 20250324
  2. ZENATANE [Suspect]
     Active Substance: ISOTRETINOIN
     Dosage: NDC NUMBER 55111-0137-81
     Route: 048
  3. ZENATANE [Suspect]
     Active Substance: ISOTRETINOIN
     Dosage: NDC NUMBER 55111-0136-81
     Route: 048
  4. ZENATANE [Suspect]
     Active Substance: ISOTRETINOIN
     Dosage: NDC NUMBER 55111-0135-81
     Route: 048
     Dates: end: 20251003

REACTIONS (1)
  - Exposure during pregnancy [Unknown]

NARRATIVE: CASE EVENT DATE: 20250921
